FAERS Safety Report 11408948 (Version 8)
Quarter: 2016Q4

REPORT INFORMATION
  Report Type: Spontaneous
  Country: CA (occurrence: CA)
  Receive Date: 20150824
  Receipt Date: 20161205
  Transmission Date: 20170206
  Serious: Yes (Other)
  Sender: FDA-Public Use
  Company Number: CA-ROCHE-1622901

PATIENT
  Age: 51 Year
  Sex: Female

DRUGS (16)
  1. XOLAIR [Suspect]
     Active Substance: OMALIZUMAB
     Dosage: UNK
     Route: 058
     Dates: start: 20140605
  2. XOLAIR [Suspect]
     Active Substance: OMALIZUMAB
     Dosage: UNK
     Route: 058
     Dates: start: 20160114
  3. VENTOLINE [Concomitant]
     Active Substance: ALBUTEROL
     Indication: HYPERSENSITIVITY
     Dosage: 6 TIMES IN ONE DAY
     Route: 065
  4. XOLAIR [Suspect]
     Active Substance: OMALIZUMAB
     Dosage: UNK
     Route: 058
     Dates: start: 20141106
  5. XOLAIR [Suspect]
     Active Substance: OMALIZUMAB
     Indication: ASTHMA
     Dosage: 225 MG, EVERY 2 WEEKS
     Route: 058
     Dates: start: 20140327
  6. XOLAIR [Suspect]
     Active Substance: OMALIZUMAB
     Dosage: UNK
     Route: 058
     Dates: start: 20140522
  7. XOLAIR [Suspect]
     Active Substance: OMALIZUMAB
     Dosage: UNK
     Route: 058
     Dates: start: 20141230
  8. XOLAIR [Suspect]
     Active Substance: OMALIZUMAB
     Dosage: UNK
     Route: 058
     Dates: start: 20140424
  9. XOLAIR [Suspect]
     Active Substance: OMALIZUMAB
     Route: 058
     Dates: start: 20161117
  10. ADVAIR HFA [Concomitant]
     Active Substance: FLUTICASONE PROPIONATE\SALMETEROL XINAFOATE
     Indication: PRODUCT USED FOR UNKNOWN INDICATION
     Dosage: 2 INHALATIONS, BID
     Route: 055
  11. XOLAIR [Suspect]
     Active Substance: OMALIZUMAB
     Dosage: UNK
     Route: 058
     Dates: start: 20140717
  12. XOLAIR [Suspect]
     Active Substance: OMALIZUMAB
     Dosage: UNK
     Route: 058
     Dates: start: 20160114
  13. XOLAIR [Suspect]
     Active Substance: OMALIZUMAB
     Dosage: UNK
     Route: 058
     Dates: start: 20150115
  14. VENTOLINE [Concomitant]
     Active Substance: ALBUTEROL
     Indication: HYPERSENSITIVITY
     Route: 065
  15. ALVESCO [Concomitant]
     Active Substance: CICLESONIDE
     Indication: PRODUCT USED FOR UNKNOWN INDICATION
     Dosage: 2 INHALATIONS
     Route: 055
  16. SINGULAIR [Concomitant]
     Active Substance: MONTELUKAST SODIUM
     Indication: PRODUCT USED FOR UNKNOWN INDICATION
     Dosage: UNK
     Route: 065

REACTIONS (52)
  - Anaphylactic shock [Unknown]
  - Influenza [Unknown]
  - Aphonia [Unknown]
  - Lymph node pain [Recovering/Resolving]
  - Dysgeusia [Unknown]
  - Stress [Unknown]
  - Hyperhidrosis [Unknown]
  - Feeling hot [Unknown]
  - Blood pressure systolic increased [Recovered/Resolved]
  - Traumatic lung injury [Unknown]
  - Drug hypersensitivity [Unknown]
  - Nasal obstruction [Unknown]
  - Nasal discharge discolouration [Unknown]
  - Migraine [Unknown]
  - Oral mucosal eruption [Unknown]
  - Hypertension [Unknown]
  - Dyspnoea [Unknown]
  - Stomach mass [Unknown]
  - Lymphadenopathy [Unknown]
  - Depression [Unknown]
  - Fatigue [Unknown]
  - Memory impairment [Unknown]
  - Myalgia [Unknown]
  - Musculoskeletal pain [Recovered/Resolved]
  - Nasopharyngitis [Unknown]
  - Breast mass [Unknown]
  - Discomfort [Unknown]
  - Pyrexia [Unknown]
  - Asthenia [Unknown]
  - Wound complication [Unknown]
  - Nightmare [Unknown]
  - Back pain [Unknown]
  - Arteriosclerosis [Unknown]
  - Asthma [Unknown]
  - Contusion [Unknown]
  - Malaise [Unknown]
  - Intervertebral disc protrusion [Unknown]
  - Pain [Unknown]
  - Alopecia [Unknown]
  - Rales [Unknown]
  - Insomnia [Unknown]
  - Depressed mood [Unknown]
  - Hypoaesthesia [Recovering/Resolving]
  - Atelectasis [Unknown]
  - Breath sounds abnormal [Unknown]
  - Respiratory rate increased [Not Recovered/Not Resolved]
  - Headache [Unknown]
  - Anxiety [Unknown]
  - Diarrhoea [Unknown]
  - Nausea [Unknown]
  - Nervousness [Unknown]
  - Wound [Recovered/Resolved]

NARRATIVE: CASE EVENT DATE: 20140327
